FAERS Safety Report 10680147 (Version 3)
Quarter: 2015Q1

REPORT INFORMATION
  Report Type: Spontaneous
  Country: ES (occurrence: ES)
  Receive Date: 20141229
  Receipt Date: 20150120
  Transmission Date: 20150720
  Serious: Yes (Other)
  Sender: FDA-Public Use
  Company Number: ES-JNJFOC-20141212632

PATIENT

DRUGS (4)
  1. METHOTREXATE [Concomitant]
     Active Substance: METHOTREXATE
     Dosage: 5 TO 20 MG WEEKLY
     Route: 065
  2. ACITRETIN. [Concomitant]
     Active Substance: ACITRETIN
     Dosage: 5 TO 20 MG WEEKLY
     Route: 065
  3. INFLIXIMAB, RECOMBINANT [Suspect]
     Active Substance: INFLIXIMAB
     Indication: PSORIASIS
     Dosage: BASE LINE, WEEKS 2, 6 AND EVERY 8 WEEKS THEREAFTER
     Route: 042
  4. CICLOSPORIN [Concomitant]
     Active Substance: CYCLOSPORINE
     Dosage: 5 TO 20 MG WEEKLY
     Route: 065

REACTIONS (24)
  - Antinuclear antibody increased [Unknown]
  - Large cell lung cancer [Unknown]
  - Viral skin infection [Unknown]
  - Hypertension [Unknown]
  - Basal cell carcinoma [Unknown]
  - Diabetes mellitus [Unknown]
  - Skin bacterial infection [Unknown]
  - Upper respiratory tract infection [Unknown]
  - Paraproteinaemia [Unknown]
  - Latent tuberculosis [Unknown]
  - Drug ineffective [Unknown]
  - Body mass index increased [Unknown]
  - Squamous cell carcinoma of skin [Unknown]
  - Lower respiratory tract infection [Unknown]
  - Infusion related reaction [Unknown]
  - Infusion related reaction [Recovered/Resolved]
  - Fibromyalgia [Unknown]
  - Device related infection [Unknown]
  - Leukoplakia [Unknown]
  - Vulvovaginal candidiasis [Unknown]
  - Gastroenteritis [Unknown]
  - Ear infection [Unknown]
  - Cholesteatoma [Unknown]
  - Transaminases increased [Unknown]
